FAERS Safety Report 7223701 (Version 7)
Quarter: 2013Q2

REPORT INFORMATION
  Report Type: Report from Study
  Country: NL (occurrence: NL)
  Receive Date: 20091221
  Receipt Date: 20130611
  Transmission Date: 20140414
  Serious: Yes (Death, Hospitalization)
  Sender: FDA-Public Use
  Company Number: NL-JNJFOC-20091203972

PATIENT
  Age: 74 Year
  Sex: Male
  Weight: 78.6 kg

DRUGS (5)
  1. REMICADE [Suspect]
     Indication: CROHN^S DISEASE
     Route: 042
     Dates: start: 20080916
  2. VORICONAZOLE [Suspect]
     Indication: ASPERGILLUS INFECTION
     Dates: start: 2009, end: 2009
  3. POSACONAZOLE [Suspect]
     Indication: ASPERGILLUS INFECTION
     Dates: start: 2009, end: 2009
  4. BUDESONIDE [Concomitant]
     Route: 065
  5. ESOMEPRAZOLE [Concomitant]
     Route: 065

REACTIONS (12)
  - Lung abscess [Fatal]
  - Bronchopulmonary aspergillosis [Fatal]
  - Hallucination [Unknown]
  - Bronchiolitis [Unknown]
  - Rib fracture [Unknown]
  - Haemoglobin decreased [Unknown]
  - Oedema [Unknown]
  - Hepatic function abnormal [Unknown]
  - Escherichia infection [Unknown]
  - Pseudomonas infection [Unknown]
  - Aspergillus infection [Unknown]
  - Crohn^s disease [Unknown]
